FAERS Safety Report 4398267-1 (Version None)
Quarter: 2004Q3

REPORT INFORMATION
  Report Type: 
  Country: None (occurrence: None)
  Receive Date: 20040713
  Receipt Date: 20040630
  Transmission Date: 20050211
  Serious: Yes (Hospitalization)
  Sender: FDA-Public Use
  Company Number: DE-JNJFOC-20040700526

PATIENT
  Age: 20 Year
  Sex: Female
  Weight: 58 kg

DRUGS (1)
  1. ORTHO EVRA [Suspect]
     Indication: CONTRACEPTION
     Dosage: TRANSDERMAL
     Route: 062
     Dates: start: 20030711

REACTIONS (7)
  - ABSCESS [None]
  - COLITIS ULCERATIVE [None]
  - COLONIC STENOSIS [None]
  - DISEASE RECURRENCE [None]
  - INFLAMMATION [None]
  - MASTITIS [None]
  - PYODERMA GANGRENOSUM [None]
